FAERS Safety Report 5808211-5 (Version None)
Quarter: 2008Q3

REPORT INFORMATION
  Report Type: 
  Country: None (occurrence: None)
  Receive Date: 20080709
  Receipt Date: 20080623
  Transmission Date: 20090109
  Serious: Yes (Hospitalization)
  Sender: FDA-Public Use
  Company Number: 2008BI016462

PATIENT
  Sex: Female
  Weight: 46.2669 kg

DRUGS (1)
  1. TYSABRI [Suspect]
     Indication: MULTIPLE SCLEROSIS
     Dosage: 300 MG; QM; IV
     Route: 042
     Dates: start: 20070101, end: 20080623

REACTIONS (8)
  - AMNESIA [None]
  - COGNITIVE DISORDER [None]
  - CORONARY ARTERY OCCLUSION [None]
  - DEHYDRATION [None]
  - DIZZINESS [None]
  - EYE ROLLING [None]
  - MALAISE [None]
  - VISION BLURRED [None]
